FAERS Safety Report 18791556 (Version 1)
Quarter: 2021Q1

REPORT INFORMATION
  Report Type: Spontaneous
  Country: US (occurrence: US)
  Receive Date: 20210126
  Receipt Date: 20210126
  Transmission Date: 20210419
  Serious: No
  Sender: FDA-Public Use
  Company Number: US-PERRIGO-20US001766

PATIENT
  Age: 2 Year
  Sex: Male
  Weight: 16.78 kg

DRUGS (2)
  1. IBUPROFEN. [Suspect]
     Active Substance: IBUPROFEN
     Indication: PYREXIA
     Dosage: 100 MG, SINGLE
     Route: 048
     Dates: start: 201910, end: 201910
  2. IBUPROFEN. [Suspect]
     Active Substance: IBUPROFEN
     Dosage: 100 MG, SINGLE
     Route: 048
     Dates: start: 201912, end: 201912

REACTIONS (1)
  - Exposure to unspecified agent [Recovered/Resolved]

NARRATIVE: CASE EVENT DATE: 201910
